FAERS Safety Report 5688680-4 (Version None)
Quarter: 2008Q1

REPORT INFORMATION
  Report Type: 
  Country: None (occurrence: None)
  Receive Date: 20080331
  Receipt Date: 20080319
  Transmission Date: 20080703
  Serious: Yes (Hospitalization)
  Sender: FDA-Public Use
  Company Number: AU-MERCK-0803AUS00172

PATIENT
  Age: 80 Year
  Sex: Female

DRUGS (2)
  1. FOSAMAX [Suspect]
     Indication: OSTEOPOROSIS
     Route: 048
     Dates: start: 20030101
  2. CALCIUM CARBONATE [Concomitant]
     Indication: OSTEOPOROSIS
     Route: 065

REACTIONS (2)
  - FALL [None]
  - VERTEBRAL INJURY [None]
